FAERS Safety Report 9270074 (Version 3)
Quarter: 2013Q2

REPORT INFORMATION
  Report Type: Spontaneous
  Country: US (occurrence: US)
  Receive Date: 20130503
  Receipt Date: 20130530
  Transmission Date: 20140414
  Serious: Yes (Hospitalization)
  Sender: FDA-Public Use
  Company Number: US-JNJFOC-20130414967

PATIENT
  Age: 7 Decade
  Sex: Male

DRUGS (1)
  1. STELARA [Suspect]
     Indication: PSORIASIS
     Route: 058
     Dates: end: 2013

REACTIONS (3)
  - Bladder cancer [Recovered/Resolved]
  - Prostate cancer [Recovered/Resolved]
  - Squamous cell carcinoma [Recovered/Resolved]
